FAERS Safety Report 24962013 (Version 1)
Quarter: 2025Q1

REPORT INFORMATION
  Report Type: Spontaneous
  Country: AU (occurrence: AU)
  Receive Date: 20250212
  Receipt Date: 20250212
  Transmission Date: 20250409
  Serious: Yes (Other)
  Sender: PFIZER
  Company Number: AU-PFIZER INC-PV202500016063

PATIENT

DRUGS (1)
  1. XELJANZ [Suspect]
     Active Substance: TOFACITINIB CITRATE
     Indication: Rheumatic disorder
     Dosage: UNK, 2X/DAY

REACTIONS (4)
  - Cerebrovascular accident [Unknown]
  - Neoplasm malignant [Unknown]
  - Cardiovascular disorder [Unknown]
  - Drug ineffective [Unknown]
